FAERS Safety Report 17456580 (Version 1)
Quarter: 2020Q1

REPORT INFORMATION
  Report Type: Spontaneous
  Country: US (occurrence: US)
  Receive Date: 20200225
  Receipt Date: 20200225
  Transmission Date: 20200409
  Serious: No
  Sender: FDA-Public Use
  Company Number: US-MYLANLABS-2020M1016380

PATIENT
  Sex: Female
  Weight: 117 kg

DRUGS (1)
  1. ESTRADIOL TRANSDERMAL SYSTEM [Suspect]
     Active Substance: ESTRADIOL
     Indication: HORMONE REPLACEMENT THERAPY
     Dosage: TWICE WEEKLY
     Route: 062

REACTIONS (2)
  - Vaginal haemorrhage [Recovering/Resolving]
  - Product adhesion issue [Unknown]
